FAERS Safety Report 6929858-9 (Version None)
Quarter: 2010Q3

REPORT INFORMATION
  Report Type: 
  Country: None (occurrence: None)
  Receive Date: 20100817
  Receipt Date: 20100817
  Transmission Date: 20110219
  Serious: No
  Sender: FDA-Public Use
  Company Number: None

PATIENT
  Sex: Male
  Weight: 194.1395 kg

DRUGS (1)
  1. ENALAPRIL MALEATE AND HYDROCHLOROTHIAZIDE [Suspect]
     Indication: HYPERTENSION
     Dosage: 5/12.5 MG ONCE QD ORAL
     Route: 048
     Dates: start: 20090101, end: 20100101

REACTIONS (1)
  - COUGH [None]
